FAERS Safety Report 23610786 (Version 1)
Quarter: 2024Q1

REPORT INFORMATION
  Report Type: Spontaneous
  Country: US (occurrence: None)
  Receive Date: 20240307
  Receipt Date: 20240307
  Transmission Date: 20240409
  Serious: Yes (Other)
  Sender: FDA-Public Use
  Company Number: None

PATIENT
  Age: 60 Year
  Sex: Male
  Weight: 99.45 kg

DRUGS (1)
  1. EDEX [Suspect]
     Active Substance: ALPROSTADIL
     Indication: Urological examination
     Dosage: OTHER STRENGTH : MCG;?OTHER QUANTITY : 2 INJECTION(S);?FREQUENCY : AS NEEDED;?OTHER ROUTE : INJECTED
     Route: 050

REACTIONS (1)
  - Procedural pain [None]

NARRATIVE: CASE EVENT DATE: 20240306
